FAERS Safety Report 19938798 (Version 1)
Quarter: 2021Q4

REPORT INFORMATION
  Report Type: Spontaneous
  Country: BA (occurrence: BA)
  Receive Date: 20211011
  Receipt Date: 20211011
  Transmission Date: 20220303
  Serious: No
  Sender: FDA-Public Use
  Company Number: BA-LUPIN PHARMACEUTICALS INC.-2021-18970

PATIENT
  Age: 57 Year
  Sex: Male

DRUGS (9)
  1. AZITHROMYCIN ANHYDROUS [Suspect]
     Active Substance: AZITHROMYCIN ANHYDROUS
     Indication: COVID-19 pneumonia
     Dosage: 500 MILLIGRAM, QD
     Route: 065
  2. MOXIFLOXACIN [Suspect]
     Active Substance: MOXIFLOXACIN
     Indication: COVID-19 pneumonia
     Dosage: 400 MILLIGRAM, QD
     Route: 065
  3. DEXAMETHASONE [Suspect]
     Active Substance: DEXAMETHASONE
     Indication: COVID-19 pneumonia
     Dosage: 8 MILLIGRAM
     Route: 051
  4. DEXAMETHASONE [Suspect]
     Active Substance: DEXAMETHASONE
     Dosage: 6 MILLIGRAM, QD
     Route: 051
  5. ASPIRIN [Concomitant]
     Active Substance: ASPIRIN
     Indication: Product used for unknown indication
     Dosage: 400 MILLIGRAM, QD DIVIDED IN 2 DOSES
     Route: 065
  6. ASPIRIN [Concomitant]
     Active Substance: ASPIRIN
     Dosage: 100 MILLIGRAM, QD
     Route: 065
  7. SALINE [Concomitant]
     Active Substance: SODIUM CHLORIDE
     Indication: Product used for unknown indication
     Dosage: UNK
     Route: 065
  8. LACTATED RINGERS SOLUTION [Concomitant]
     Active Substance: CALCIUM CHLORIDE\POTASSIUM CHLORIDE\SODIUM CHLORIDE\SODIUM LACTATE
     Indication: Product used for unknown indication
     Dosage: UNK
     Route: 065
  9. BETA GLUCAN [Concomitant]
     Active Substance: BETA GLUCAN
     Indication: Product used for unknown indication
     Dosage: UNK
     Route: 065

REACTIONS (1)
  - Off label use [Unknown]
